FAERS Safety Report 24982290 (Version 1)
Quarter: 2025Q1

REPORT INFORMATION
  Report Type: Spontaneous
  Country: RU (occurrence: RU)
  Receive Date: 20250218
  Receipt Date: 20250218
  Transmission Date: 20250409
  Serious: Yes (Other)
  Sender: MELINTA THERAPEUTICS
  Company Number: RU-ASTRAZENECA-202502RUS001034RU

PATIENT

DRUGS (3)
  1. METOPROLOL SUCCINATE [Suspect]
     Active Substance: METOPROLOL SUCCINATE
     Indication: Product used for unknown indication
     Dosage: 25 MILLIGRAM, QD
     Route: 048
  2. EUTHYROX [Concomitant]
     Active Substance: LEVOTHYROXINE SODIUM
     Indication: Product used for unknown indication
     Dosage: 85 MICROGRAM, QD
     Route: 065
  3. VITAMIN D NOS [Concomitant]
     Active Substance: CHOLECALCIFEROL\ERGOCALCIFEROL
     Indication: Product used for unknown indication
     Route: 065

REACTIONS (7)
  - Heart rate increased [Unknown]
  - Asphyxia [Unknown]
  - Autoimmune thyroiditis [Not Recovered/Not Resolved]
  - Sleep disorder [Unknown]
  - Menstrual disorder [Unknown]
  - Palpitations [Unknown]
  - Diarrhoea [Unknown]
